FAERS Safety Report 19738257 (Version 1)
Quarter: 2021Q3

REPORT INFORMATION
  Report Type: Spontaneous
  Country: US (occurrence: US)
  Receive Date: 20210820
  Receipt Date: 20210820
  Transmission Date: 20211014
  Serious: No
  Sender: FDA-Public Use
  Company Number: None

PATIENT
  Age: 32 Year
  Sex: Female
  Weight: 96.62 kg

DRUGS (3)
  1. DEXAMETHASONE. [Concomitant]
     Active Substance: DEXAMETHASONE
  2. CARVEDILOL. [Concomitant]
     Active Substance: CARVEDILOL
  3. CAPECITABINE. [Suspect]
     Active Substance: CAPECITABINE
     Indication: BREAST CANCER
     Dosage: ?          OTHER FREQUENCY:BID 14/21 DAYS;?
     Route: 048
     Dates: start: 20210730

REACTIONS (3)
  - Skin discolouration [None]
  - Nail disorder [None]
  - Blister [None]

NARRATIVE: CASE EVENT DATE: 20210820
